FAERS Safety Report 22764802 (Version 2)
Quarter: 2024Q1

REPORT INFORMATION
  Report Type: Report from Study
  Country: GB (occurrence: GB)
  Receive Date: 20230731
  Receipt Date: 20240129
  Transmission Date: 20240410
  Serious: No
  Sender: FDA-Public Use
  Company Number: GB-SANDOZ-SDZ2023GB007041

PATIENT
  Sex: Female

DRUGS (1)
  1. OMNITROPE [Suspect]
     Active Substance: SOMATROPIN
     Indication: Pituitary gonadotropin hyperfunction
     Dosage: 1.30 MG OD
     Route: 058

REACTIONS (2)
  - Injection site pain [Unknown]
  - Product dose omission issue [Unknown]
